FAERS Safety Report 11966321 (Version 1)
Quarter: 2016Q1

REPORT INFORMATION
  Report Type: Spontaneous
  Country: US (occurrence: None)
  Receive Date: 20160126
  Receipt Date: 20160126
  Transmission Date: 20160526
  Serious: No
  Sender: FDA-Public Use
  Company Number: None

PATIENT
  Age: 43 Year
  Sex: Female
  Weight: 73.94 kg

DRUGS (8)
  1. BREO ELLIPTA [Suspect]
     Active Substance: FLUTICASONE FUROATE\VILANTEROL TRIFENATATE
     Indication: BRONCHOSPASM
     Dosage: 1 PUFF PER DAY, ONCE DAILY, TAKEN BY MOUTH
     Route: 048
     Dates: start: 20151226, end: 20151228
  2. SYMBICORT [Concomitant]
     Active Substance: BUDESONIDE\FORMOTEROL FUMARATE DIHYDRATE
  3. SPIRIVA RESPIMAT [Concomitant]
     Active Substance: TIOTROPIUM BROMIDE
  4. BREO ELLIPTA [Suspect]
     Active Substance: FLUTICASONE FUROATE\VILANTEROL TRIFENATATE
     Indication: ASTHMA
     Dosage: 1 PUFF PER DAY, ONCE DAILY, TAKEN BY MOUTH
     Route: 048
     Dates: start: 20151226, end: 20151228
  5. ARMOUR THYROID [Concomitant]
     Active Substance: THYROID, PORCINE
  6. DYMISTA [Concomitant]
     Active Substance: AZELASTINE HYDROCHLORIDE\FLUTICASONE PROPIONATE
  7. PROAIR HFA [Concomitant]
     Active Substance: ALBUTEROL SULFATE
  8. MULTIVITAMIN [Concomitant]
     Active Substance: VITAMINS

REACTIONS (7)
  - Condition aggravated [None]
  - Musculoskeletal chest pain [None]
  - Pain of skin [None]
  - Bronchial disorder [None]
  - Inflammation [None]
  - Hypersensitivity [None]
  - Lymphadenopathy [None]

NARRATIVE: CASE EVENT DATE: 20151228
